FAERS Safety Report 23848617 (Version 1)
Quarter: 2024Q2

REPORT INFORMATION
  Report Type: Spontaneous
  Country: IE (occurrence: IE)
  Receive Date: 20240513
  Receipt Date: 20240513
  Transmission Date: 20240715
  Serious: Yes (Other)
  Sender: FDA-Public Use
  Company Number: IE-MYLANLABS-2024M1040178

PATIENT
  Sex: Male

DRUGS (1)
  1. CLOZARIL [Suspect]
     Active Substance: CLOZAPINE
     Indication: Schizophrenia
     Dosage: UNK
     Route: 048
     Dates: start: 20240409, end: 20240505

REACTIONS (6)
  - Eosinophil count increased [Recovering/Resolving]
  - White blood cell count increased [Recovering/Resolving]
  - Differential white blood cell count abnormal [Unknown]
  - Tachycardia [Unknown]
  - Electrocardiogram PR prolongation [Unknown]
  - Electrocardiogram abnormal [Unknown]

NARRATIVE: CASE EVENT DATE: 20240506
